FAERS Safety Report 8382861-7 (Version None)
Quarter: 2012Q2

REPORT INFORMATION
  Report Type: 
  Country: None (occurrence: None)
  Receive Date: 20120524
  Receipt Date: 20120516
  Transmission Date: 20120825
  Serious: Yes (Hospitalization, Congenital Anomaly, Other)
  Sender: FDA-Public Use
  Company Number: US-PFIZER INC-2010109634

PATIENT
  Sex: Female
  Weight: 2.67 kg

DRUGS (2)
  1. ZOLOFT [Suspect]
     Dosage: 50 MG, UNK
     Route: 064
     Dates: start: 20020624
  2. MULTI-VITAMINS [Concomitant]
     Dosage: UNK
     Route: 064

REACTIONS (10)
  - PHARYNGOTONSILLITIS [None]
  - OPTIC NERVE CUP/DISC RATIO INCREASED [None]
  - FOETAL EXPOSURE DURING PREGNANCY [None]
  - RESPIRATORY SYNCYTIAL VIRUS INFECTION [None]
  - VISUAL IMPAIRMENT [None]
  - OTITIS MEDIA CHRONIC [None]
  - HYPERMETROPIA [None]
  - STRABISMUS [None]
  - BRONCHIOLITIS [None]
  - VENTRICULAR SEPTAL DEFECT [None]
